FAERS Safety Report 4838974-7 (Version None)
Quarter: 2005Q4

REPORT INFORMATION
  Report Type: 
  Country: None (occurrence: None)
  Receive Date: 20051031
  Receipt Date: 20050913
  Transmission Date: 20060501
  Serious: No
  Sender: FDA-Public Use
  Company Number: 200516042US

PATIENT
  Age: 42 Year
  Sex: Female

DRUGS (3)
  1. KETEK [Suspect]
     Indication: SINUSITIS
     Dosage: 400 MG QD PO
     Route: 048
     Dates: start: 20050725, end: 20050725
  2. LORATADINE (CLARITIN) [Concomitant]
  3. PRILOSEC [Concomitant]

REACTIONS (2)
  - VISION BLURRED [None]
  - VISUAL ACUITY REDUCED [None]
